FAERS Safety Report 20923528 (Version 1)
Quarter: 2022Q2

REPORT INFORMATION
  Report Type: Spontaneous
  Country: US (occurrence: None)
  Receive Date: 20220606
  Receipt Date: 20220606
  Transmission Date: 20220720
  Serious: Yes (Death)
  Sender: FDA-Public Use
  Company Number: None

PATIENT
  Age: 72 Year
  Sex: Male

DRUGS (1)
  1. ADCIRCA [Suspect]
     Active Substance: TADALAFIL
     Indication: Pulmonary arterial hypertension
     Dosage: 40 MG ONCE DAILY ORAL
     Route: 048
     Dates: start: 201611

REACTIONS (3)
  - Hepatic cirrhosis [None]
  - Cardiac failure [None]
  - Hypertension [None]

NARRATIVE: CASE EVENT DATE: 20220528
